FAERS Safety Report 6595469-0 (Version None)
Quarter: 2010Q1

REPORT INFORMATION
  Report Type: 
  Country: None (occurrence: None)
  Receive Date: 20100222
  Receipt Date: 20100222
  Transmission Date: 20100710
  Serious: Yes (Other)
  Sender: FDA-Public Use
  Company Number: None

PATIENT
  Age: 26 Year
  Sex: Female
  Weight: 59.1 kg

DRUGS (1)
  1. REMBRANDT 2 HOUR WHITENING KIT [Suspect]
     Indication: TOOTH DISCOLOURATION
     Dosage: ORALLY
     Route: 048
     Dates: start: 20100201

REACTIONS (2)
  - GINGIVAL DISCOLOURATION [None]
  - GINGIVAL RECESSION [None]
